FAERS Safety Report 24413020 (Version 1)
Quarter: 2024Q4

REPORT INFORMATION
  Report Type: Spontaneous
  Country: US (occurrence: US)
  Receive Date: 20241008
  Receipt Date: 20241008
  Transmission Date: 20250115
  Serious: No
  Sender: JOHNSON AND JOHNSON
  Company Number: US-JNJFOC-20241012929

PATIENT
  Age: 53 Year
  Sex: Male

DRUGS (8)
  1. OPSUMIT [Suspect]
     Active Substance: MACITENTAN
     Indication: Product used for unknown indication
     Route: 048
     Dates: end: 2024
  2. ORENITRAM [Suspect]
     Active Substance: TREPROSTINIL
     Indication: Pulmonary arterial hypertension
     Route: 048
     Dates: start: 20240401
  3. ORENITRAM [Suspect]
     Active Substance: TREPROSTINIL
     Indication: Pulmonary arterial hypertension
     Route: 048
     Dates: start: 2024
  4. ORENITRAM [Suspect]
     Active Substance: TREPROSTINIL
     Route: 048
  5. ORENITRAM [Suspect]
     Active Substance: TREPROSTINIL
     Route: 048
  6. SILDENAFIL CITRATE [Concomitant]
     Active Substance: SILDENAFIL CITRATE
  7. LISINOPRIL [Concomitant]
     Active Substance: LISINOPRIL
  8. OXYGEN [Concomitant]
     Active Substance: OXYGEN

REACTIONS (2)
  - Fluid retention [Unknown]
  - Constipation [Unknown]

NARRATIVE: CASE EVENT DATE: 20240101
